FAERS Safety Report 6575487-9 (Version None)
Quarter: 2010Q1

REPORT INFORMATION
  Report Type: 
  Country: None (occurrence: None)
  Receive Date: 20100208
  Receipt Date: 20100208
  Transmission Date: 20100710
  Serious: Yes (Hospitalization)
  Sender: FDA-Public Use
  Company Number: None

PATIENT
  Age: 56 Year
  Sex: Male
  Weight: 77.1115 kg

DRUGS (1)
  1. LISINOPRIL 2.5 LUPIN [Suspect]
     Indication: HYPERTENSION
     Dosage: 1 PER DAY PO
     Route: 048
     Dates: start: 20100128, end: 20100203

REACTIONS (3)
  - ABDOMINAL PAIN UPPER [None]
  - DYSPHAGIA [None]
  - DYSPNOEA [None]
